FAERS Safety Report 9551371 (Version 2)
Quarter: 2013Q4

REPORT INFORMATION
  Report Type: Spontaneous
  Country: BE (occurrence: BE)
  Receive Date: 20130925
  Receipt Date: 20131021
  Transmission Date: 20140711
  Serious: Yes (Other)
  Sender: FDA-Public Use
  Company Number: BE-AMGEN-BELSP2013067220

PATIENT
  Age: 57 Year
  Sex: Female
  Weight: 63 kg

DRUGS (3)
  1. XGEVA [Suspect]
     Indication: METASTASES TO BONE
     Dosage: UNK UNK, QMO
     Route: 058
     Dates: start: 201302
  2. IRESSA [Concomitant]
     Dosage: UNK
     Route: 048
     Dates: start: 201302
  3. CALCIUM [Concomitant]
     Dosage: UNK
     Route: 048
     Dates: start: 201302

REACTIONS (1)
  - Metastases to bone [Not Recovered/Not Resolved]
